FAERS Safety Report 8272646-4 (Version None)
Quarter: 2012Q2

REPORT INFORMATION
  Report Type: 
  Country: None (occurrence: None)
  Receive Date: 20120410
  Receipt Date: 20120403
  Transmission Date: 20120825
  Serious: Yes (Other)
  Sender: FDA-Public Use
  Company Number: US-ELI_LILLY_AND_COMPANY-US201204001160

PATIENT
  Age: 84 Year
  Sex: Female
  Weight: 68.481 kg

DRUGS (4)
  1. JANUVIA [Concomitant]
  2. HUMULIN N [Suspect]
     Indication: TYPE 2 DIABETES MELLITUS
     Dosage: UNK
     Route: 058
  3. HUMULIN R [Suspect]
     Indication: TYPE 2 DIABETES MELLITUS
     Dosage: UNK, EACH EVENING
     Route: 058
  4. LANTUS [Concomitant]
     Dosage: 35 U, QD
     Route: 058

REACTIONS (4)
  - CARDIAC PACEMAKER INSERTION [None]
  - WEIGHT DECREASED [None]
  - BLOOD GLUCOSE ABNORMAL [None]
  - LOSS OF CONSCIOUSNESS [None]
